FAERS Safety Report 4542326-7 (Version None)
Quarter: 2004Q4

REPORT INFORMATION
  Report Type: 
  Country: None (occurrence: None)
  Receive Date: 20041227
  Receipt Date: 20041213
  Transmission Date: 20050328
  Serious: Yes (Other)
  Sender: FDA-Public Use
  Company Number: 2004103864

PATIENT
  Sex: Female

DRUGS (3)
  1. CELEBREX [Suspect]
     Indication: MUSCULOSKELETAL DISCOMFORT
     Dosage: (200 MG, PRN)
     Dates: start: 19990101
  2. ANTIGOUT PREPARATIONS (ANTIGOUT PREPARATIONS) [Concomitant]
  3. ANTITHYROID PREPARATIONS (ANTITHYROID PREPARATIONS) [Concomitant]

REACTIONS (5)
  - CEREBROVASCULAR ACCIDENT [None]
  - FALL [None]
  - PAIN [None]
  - SPINAL FRACTURE [None]
  - THERAPEUTIC RESPONSE DECREASED [None]
